FAERS Safety Report 9347859 (Version 1)
Quarter: 2013Q2

REPORT INFORMATION
  Report Type: Spontaneous
  Country: US (occurrence: None)
  Receive Date: 20130612
  Receipt Date: 20130612
  Transmission Date: 20140414
  Serious: Yes (Other)
  Sender: FDA-Public Use
  Company Number: None

PATIENT
  Sex: Female
  Weight: 56.7 kg

DRUGS (1)
  1. PROLIA [Suspect]
     Dosage: OCT OR NOV 2012
     Dates: start: 2012

REACTIONS (2)
  - Back pain [None]
  - Pain in extremity [None]
